FAERS Safety Report 21803074 (Version 1)
Quarter: 2022Q4

REPORT INFORMATION
  Report Type: Report from Study
  Country: US (occurrence: US)
  Receive Date: 20221231
  Receipt Date: 20221231
  Transmission Date: 20230113
  Serious: No
  Sender: FDA-Public Use
  Company Number: US-ACORDA-ACO_174170_2022

PATIENT
  Sex: Male

DRUGS (2)
  1. INBRIJA [Suspect]
     Active Substance: LEVODOPA
     Indication: Parkinson^s disease
     Dosage: 2 DOSAGE FORM (CAPSULE), PRN (DO NOT EXCEED 6 DOSES PER DAY)
     Dates: start: 20201231
  2. INBRIJA [Suspect]
     Active Substance: LEVODOPA
     Indication: On and off phenomenon

REACTIONS (5)
  - Dizziness postural [Unknown]
  - Saliva discolouration [Unknown]
  - Somnolence [Unknown]
  - Cough [Unknown]
  - Dyskinesia [Unknown]
